FAERS Safety Report 9518261 (Version 2)
Quarter: 2013Q3

REPORT INFORMATION
  Report Type: Report from Study
  Country: CA (occurrence: CA)
  Receive Date: 20130912
  Receipt Date: 20130920
  Transmission Date: 20140515
  Serious: Yes (Hospitalization, Other)
  Sender: FDA-Public Use
  Company Number: CA-JNJFOC-20130903752

PATIENT
  Age: 25 Year
  Sex: Female
  Weight: 45.5 kg

DRUGS (5)
  1. REMICADE [Suspect]
     Indication: COLITIS ULCERATIVE
     Route: 042
     Dates: start: 201208
  2. LACTOSE [Suspect]
     Indication: PRODUCT USED FOR UNKNOWN INDICATION
     Route: 065
     Dates: start: 20130826
  3. PURINETHOL [Concomitant]
     Route: 065
  4. CORTISONE [Concomitant]
     Route: 065
  5. SALOFALK [Concomitant]
     Route: 065

REACTIONS (8)
  - Presyncope [Unknown]
  - Loss of consciousness [Unknown]
  - Tremor [Unknown]
  - Convulsion [Unknown]
  - Frequent bowel movements [Unknown]
  - Abscess [Unknown]
  - Fatigue [Unknown]
  - Weight decreased [Unknown]
